FAERS Safety Report 4703224-9 (Version None)
Quarter: 2005Q2

REPORT INFORMATION
  Report Type: 
  Country: None (occurrence: None)
  Receive Date: 20050629
  Receipt Date: 20050613
  Transmission Date: 20051028
  Serious: Yes (Hospitalization)
  Sender: FDA-Public Use
  Company Number: JP-JNJFOC-20050102769

PATIENT
  Sex: Female
  Weight: 55 kg

DRUGS (20)
  1. REMICADE [Suspect]
     Route: 042
  2. REMICADE [Suspect]
     Route: 042
  3. REMICADE [Suspect]
     Indication: RHEUMATOID ARTHRITIS
     Route: 042
  4. SOLU-MEDROL [Concomitant]
     Indication: RHEUMATOID ARTHRITIS
     Dosage: 2 MG TAB.
     Route: 049
  5. LOXONIN [Concomitant]
     Indication: RHEUMATOID ARTHRITIS
     Dosage: 60MG TABLET
     Route: 049
  6. ADEFURONIC SP [Concomitant]
     Indication: RHEUMATOID ARTHRITIS
     Dosage: 50 MG
  7. FOLIAMIN [Concomitant]
     Route: 049
  8. WARFARIN [Concomitant]
     Dosage: 1 MG TABLET.
     Route: 049
  9. TAKEPRON [Concomitant]
     Route: 049
  10. MUCOSTA [Concomitant]
     Route: 049
  11. OPYSTAN [Concomitant]
     Route: 049
  12. FOSAMAC [Concomitant]
     Route: 049
  13. HALCION [Concomitant]
     Route: 049
  14. ALIMAN [Concomitant]
     Route: 049
  15. TINELAC [Concomitant]
     Dosage: 12MG TABLET
     Route: 049
  16. FERROMIA [Concomitant]
     Dosage: 50MG TABLET
     Route: 049
  17. OPALMON [Concomitant]
     Route: 049
  18. DIAZEPAM [Concomitant]
     Dosage: 2MG TABLET.
     Route: 049
  19. METOLATE [Concomitant]
  20. METOLATE [Concomitant]

REACTIONS (1)
  - EXANTHEM [None]
